FAERS Safety Report 9424097 (Version 2)
Quarter: 2013Q3

REPORT INFORMATION
  Report Type: Spontaneous
  Country: US (occurrence: US)
  Receive Date: 20130729
  Receipt Date: 20130906
  Transmission Date: 20140515
  Serious: No
  Sender: FDA-Public Use
  Company Number: US-BIOGENIDEC-2013BI069351

PATIENT
  Age: 43 Year
  Sex: Female

DRUGS (3)
  1. TYSABRI [Suspect]
     Indication: MULTIPLE SCLEROSIS
     Route: 042
     Dates: start: 20130522
  2. VALTREX [Concomitant]
     Route: 048
  3. GABAPENTIN [Concomitant]
     Indication: PARAESTHESIA
     Dates: start: 201205, end: 201206

REACTIONS (8)
  - Anxiety [Unknown]
  - Depression [Unknown]
  - Suicidal ideation [Recovered/Resolved]
  - Burning sensation [Recovered/Resolved]
  - Paraesthesia [Not Recovered/Not Resolved]
  - Abasia [Recovered/Resolved]
  - Abnormal dreams [Recovered/Resolved]
  - Drug ineffective [Not Recovered/Not Resolved]
